FAERS Safety Report 6983717-4 (Version None)
Quarter: 2010Q3

REPORT INFORMATION
  Report Type: 
  Country: None (occurrence: None)
  Receive Date: 20100914
  Receipt Date: 20050125
  Transmission Date: 20110219
  Serious: Yes (Hospitalization)
  Sender: FDA-Public Use
  Company Number: US-WYE-H07161908

PATIENT
  Age: 17 Year
  Sex: Female

DRUGS (5)
  1. ADVIL LIQUI-GELS [Suspect]
     Indication: PRODUCT USED FOR UNKNOWN INDICATION
     Dosage: 1600 MG X 1
     Route: 048
     Dates: start: 20001204, end: 20001204
  2. QUETIAPINE FUMARATE [Suspect]
     Indication: PRODUCT USED FOR UNKNOWN INDICATION
     Dosage: 38 TABLETS X 1
     Route: 048
     Dates: start: 20001204, end: 20001204
  3. TRAZODONE HCL [Suspect]
     Indication: PRODUCT USED FOR UNKNOWN INDICATION
     Dosage: 12 TABLETS X 1
     Route: 048
     Dates: start: 20001204, end: 20001204
  4. WELLBUTRIN [Suspect]
     Indication: MENTAL DISORDER
     Dosage: 38-40  TABLETS X 1
     Route: 048
     Dates: start: 20001204, end: 20001204
  5. CARBAMAZEPINE [Suspect]
     Indication: MENTAL DISORDER
     Dosage: 54 TABLETS X1
     Route: 048
     Dates: start: 20001204, end: 20001204

REACTIONS (5)
  - ILEUS PARALYTIC [None]
  - LOSS OF CONSCIOUSNESS [None]
  - OVERDOSE [None]
  - OXYGEN SATURATION DECREASED [None]
  - SOMNOLENCE [None]
